FAERS Safety Report 19025462 (Version 11)
Quarter: 2022Q2

REPORT INFORMATION
  Report Type: Report from Study
  Country: BR (occurrence: BR)
  Receive Date: 20210318
  Receipt Date: 20220620
  Transmission Date: 20220721
  Serious: Yes (Death, Life-Threatening, Other)
  Sender: FDA-Public Use
  Company Number: BR-TAKEDA-BR202015384

PATIENT
  Age: 9 Year
  Sex: Male
  Weight: 23 kg

DRUGS (12)
  1. IDURSULFASE [Suspect]
     Active Substance: IDURSULFASE
     Indication: Mucopolysaccharidosis II
     Dosage: UNK UNK, 1/WEEK
     Route: 042
  2. IDURSULFASE [Suspect]
     Active Substance: IDURSULFASE
     Dosage: 2 DOSAGE FORM, QD
     Route: 042
  3. CAPTOPRIL [Concomitant]
     Active Substance: CAPTOPRIL
     Indication: Cardiac disorder
     Dosage: 1.5 MILLILITER, BID
     Route: 065
  4. CAPTOPRIL [Concomitant]
     Active Substance: CAPTOPRIL
     Indication: Blood pressure fluctuation
  5. PROPRANOLOL [Concomitant]
     Active Substance: PROPRANOLOL HYDROCHLORIDE
     Indication: Cardiac disorder
     Dosage: 2.5 MILLIGRAM, BID
     Route: 065
  6. PROPRANOLOL [Concomitant]
     Active Substance: PROPRANOLOL HYDROCHLORIDE
     Indication: Blood pressure fluctuation
  7. RISPERIDONE [Concomitant]
     Active Substance: RISPERIDONE
     Indication: Restlessness
     Dosage: 2 MILLILITER, QD
     Route: 065
  8. ACETAMINOPHEN [Concomitant]
     Active Substance: ACETAMINOPHEN
     Indication: Pyrexia
     Dosage: 26 GTT DROPS, Q30MIN BEFORE THE INFUSION
     Route: 050
  9. ACETAMINOPHEN [Concomitant]
     Active Substance: ACETAMINOPHEN
     Dosage: 26 GTT DROPS, Q30MIN AFTER THE INFUSION
     Route: 050
  10. ACETAMINOPHEN [Concomitant]
     Active Substance: ACETAMINOPHEN
     Dosage: 26 GTT DROPS, Q6HR DURING 2 OR 3 DAYS AFTER THE INFUSION
     Route: 050
  11. HYDROCORTISONE [Concomitant]
     Active Substance: HYDROCORTISONE
     Indication: Hypersensitivity
     Dosage: 8 MILLILITER, Q30MIN BEFORE THE INFUSION
     Route: 065
  12. HYDROXYZINE HYDROCHLORIDE [Concomitant]
     Active Substance: HYDROXYZINE HYDROCHLORIDE
     Dosage: UNK
     Route: 065

REACTIONS (35)
  - Death [Fatal]
  - Cardio-respiratory arrest [Unknown]
  - Cholecystectomy [Unknown]
  - Inguinal hernia [Unknown]
  - Gastrostomy [Unknown]
  - Apnoea [Recovered/Resolved]
  - Cyanosis [Recovered/Resolved]
  - Arrhythmia [Recovered/Resolved]
  - Dysphagia [Unknown]
  - Asthenia [Unknown]
  - Blood pressure fluctuation [Recovering/Resolving]
  - Restlessness [Not Recovered/Not Resolved]
  - Peripheral swelling [Recovered/Resolved]
  - Irritability [Recovered/Resolved]
  - Oxygen saturation abnormal [Recovered/Resolved]
  - Flatulence [Recovered/Resolved]
  - Muscular weakness [Not Recovered/Not Resolved]
  - Allergic reaction to excipient [Recovered/Resolved]
  - Unevaluable event [Unknown]
  - Malaise [Unknown]
  - Eating disorder [Unknown]
  - Weight decreased [Unknown]
  - Gastric disorder [Unknown]
  - Feeling abnormal [Unknown]
  - Condition aggravated [Unknown]
  - Ear infection [Recovering/Resolving]
  - Weight increased [Unknown]
  - Unevaluable event [Unknown]
  - Pyrexia [Recovered/Resolved]
  - Erythema [Recovering/Resolving]
  - Product availability issue [Unknown]
  - Product distribution issue [Unknown]
  - Product dose omission issue [Unknown]
  - Product administration interrupted [Unknown]
  - Inappropriate schedule of product administration [Unknown]

NARRATIVE: CASE EVENT DATE: 20200901
